FAERS Safety Report 9240064 (Version 1)
Quarter: 2013Q2

REPORT INFORMATION
  Report Type: Spontaneous
  Country: US (occurrence: US)
  Receive Date: 20130418
  Receipt Date: 20130418
  Transmission Date: 20140414
  Serious: No
  Sender: FDA-Public Use
  Company Number: US-PFIZER INC-2013120857

PATIENT
  Sex: Female
  Weight: 81.63 kg

DRUGS (5)
  1. TIKOSYN [Suspect]
     Indication: HEART RATE IRREGULAR
     Dosage: 250 UG, 2X/DAY
  2. TIKOSYN [Suspect]
     Indication: ATRIAL FIBRILLATION
  3. ASACOL [Concomitant]
     Indication: COLON CANCER
     Dosage: 800 MG, 3X/DAY
  4. FUROSEMIDE [Concomitant]
     Indication: DIURETIC THERAPY
     Dosage: HALF A TABLET 40MG DAILY
  5. METOPROLOL [Concomitant]
     Indication: CARDIAC DISORDER
     Dosage: ONE AND A HALF TABLET OF 2.5MG TWO TIMES A DAY

REACTIONS (1)
  - Drug ineffective [Unknown]
